FAERS Safety Report 4503946-9 (Version None)
Quarter: 2004Q3

REPORT INFORMATION
  Report Type: 
  Country: None (occurrence: None)
  Receive Date: 20040927
  Receipt Date: 20040720
  Transmission Date: 20050211
  Serious: No
  Sender: FDA-Public Use
  Company Number: USA040773132

PATIENT
  Age: 54 Year
  Sex: Male

DRUGS (3)
  1. STRATTERA [Suspect]
     Indication: ATTENTION DEFICIT/HYPERACTIVITY DISORDER
     Dosage: 40 MG/2 DAY
     Dates: start: 20040713
  2. MULTIVITAMIN [Concomitant]
  3. ALTACE [Concomitant]

REACTIONS (4)
  - DRY MOUTH [None]
  - GLOSSODYNIA [None]
  - HYPERHIDROSIS [None]
  - INSOMNIA [None]
